FAERS Safety Report 8976914 (Version 1)
Quarter: 2012Q4

REPORT INFORMATION
  Report Type: 
  Country: US (occurrence: US)
  Receive Date: 20121220
  Receipt Date: 20121220
  Transmission Date: 20130627
  Serious: No
  Sender: FDA-Public Use
  Company Number: US-GLAXOSMITHKLINE-A1000006A

PATIENT
  Sex: Male

DRUGS (1)
  1. PROPAFENONE [Suspect]
     Indication: ATRIAL FIBRILLATION
     Dosage: 225MG Unknown
     Route: 048

REACTIONS (2)
  - Dyspnoea [Recovering/Resolving]
  - Insomnia [Unknown]
